FAERS Safety Report 7638656-2 (Version None)
Quarter: 2011Q3

REPORT INFORMATION
  Report Type: 
  Country: None (occurrence: None)
  Receive Date: 20110720
  Receipt Date: 20110708
  Transmission Date: 20111222
  Serious: Yes (Other)
  Sender: FDA-Public Use
  Company Number: 1000022237

PATIENT
  Age: 43 Year
  Sex: Male
  Weight: 110 kg

DRUGS (3)
  1. ESCITALOPRAM OXALATE [Suspect]
     Indication: DEPRESSION
     Dosage: 10 MG (10 MG,1 IN 1 D) ; 10 MG (10 MG,1 IN 1 D),ORAL
     Dates: start: 20110201, end: 20110301
  2. ESCITALOPRAM OXALATE [Suspect]
     Indication: DEPRESSION
     Dosage: 10 MG (10 MG,1 IN 1 D) ; 10 MG (10 MG,1 IN 1 D),ORAL
     Dates: start: 20110101
  3. METHADONE (METHADONE) (METHADONE) [Concomitant]

REACTIONS (3)
  - PARAESTHESIA [None]
  - SOMNOLENCE [None]
  - SEDATION [None]
